FAERS Safety Report 16812981 (Version 1)
Quarter: 2019Q3

REPORT INFORMATION
  Report Type: Other
  Country: US (occurrence: US)
  Receive Date: 20190916
  Receipt Date: 20190916
  Transmission Date: 20191005
  Serious: No
  Sender: FDA-Public Use
  Company Number: US-LEADIANT BIOSCIENCES INC-2018STPI000662

PATIENT
  Age: 60 Year
  Sex: Female

DRUGS (8)
  1. GLEOSTINE [Concomitant]
     Active Substance: LOMUSTINE
  2. HYDROCODONE BITARTRATE AND ACETAMINOPHEN [Concomitant]
     Active Substance: ACETAMINOPHEN\HYDROCODONE BITARTRATE
  3. ONDANSETRON [Concomitant]
     Active Substance: ONDANSETRON
  4. MATULANE [Suspect]
     Active Substance: PROCARBAZINE HYDROCHLORIDE
     Indication: BRAIN NEOPLASM MALIGNANT
     Dosage: 100 MG PO QD ON DAYS 8 - 21 OF EACH CYCLE
     Route: 048
     Dates: start: 20180911
  5. SERTRALINE [Concomitant]
     Active Substance: SERTRALINE HYDROCHLORIDE
  6. LEVETIRACETAM. [Concomitant]
     Active Substance: LEVETIRACETAM
  7. LORAZEPAM. [Concomitant]
     Active Substance: LORAZEPAM
  8. PROCHLORPERAZ [Concomitant]
     Active Substance: PROCHLORPERAZINE MALEATE

REACTIONS (1)
  - Urticaria [Not Recovered/Not Resolved]

NARRATIVE: CASE EVENT DATE: 201809
